FAERS Safety Report 7308384-1 (Version None)
Quarter: 2011Q1

REPORT INFORMATION
  Report Type: 
  Country: None (occurrence: None)
  Receive Date: 20110223
  Receipt Date: 20110216
  Transmission Date: 20110831
  Serious: Yes (Hospitalization)
  Sender: FDA-Public Use
  Company Number: US-ASTRAZENECA-2011SE08966

PATIENT
  Age: 60 Year
  Sex: Male
  Weight: 68 kg

DRUGS (9)
  1. LOVASTATIN [Concomitant]
  2. ALLOPURINOL [Concomitant]
  3. NEXIUM [Suspect]
     Indication: REFLUX OESOPHAGITIS
     Route: 048
     Dates: start: 20060101
  4. GABAPENTIN [Concomitant]
  5. SEROQUEL [Suspect]
     Indication: BIPOLAR DISORDER
     Route: 048
     Dates: start: 20070101
  6. LYSINOPRIL [Concomitant]
  7. TRAZODONE HCL [Concomitant]
  8. NEURONTIN [Concomitant]
  9. METFORMIN [Concomitant]

REACTIONS (1)
  - LUNG DISORDER [None]
